FAERS Safety Report 8025649-9 (Version None)
Quarter: 2012Q1

REPORT INFORMATION
  Report Type: 
  Country: None (occurrence: None)
  Receive Date: 20120105
  Receipt Date: 20120103
  Transmission Date: 20120608
  Serious: No
  Sender: FDA-Public Use
  Company Number: US-BAYER-2012-001230

PATIENT
  Age: 75 Year
  Sex: Female
  Weight: 56.689 kg

DRUGS (6)
  1. ALEVE (CAPLET) [Suspect]
     Indication: ARTHRITIS
     Dosage: 1 TAB TWICE DAILY
     Route: 048
     Dates: start: 20111001
  2. FOSAMAX [Concomitant]
  3. VITAMIN E [Concomitant]
  4. CALCIUM ACETATE [Concomitant]
  5. LIPITOR [Concomitant]
  6. ALEVE (CAPLET) [Suspect]
     Indication: BACK PAIN
     Dosage: AS NEEDED
     Route: 048
     Dates: start: 20110101

REACTIONS (2)
  - PETECHIAE [None]
  - NO ADVERSE EVENT [None]
